FAERS Safety Report 6189909-9 (Version None)
Quarter: 2009Q2

REPORT INFORMATION
  Report Type: 
  Country: None (occurrence: None)
  Receive Date: 20090512
  Receipt Date: 20090512
  Transmission Date: 20091009
  Serious: Yes (Life-Threatening, Other)
  Sender: FDA-Public Use
  Company Number: None

PATIENT
  Age: 11 Month
  Sex: Female
  Weight: 8.1647 kg

DRUGS (2)
  1. AMOXICILLIN [Suspect]
     Indication: NASOPHARYNGITIS
     Dosage: NOT SURE INFANT DOSE 3 TIMES A DAY PO
     Route: 048
     Dates: start: 20080713, end: 20090405
  2. AMOXICILLIN [Suspect]
     Indication: RHINORRHOEA
     Dosage: NOT SURE INFANT DOSE 3 TIMES A DAY PO
     Route: 048
     Dates: start: 20080713, end: 20090405

REACTIONS (2)
  - CLOSTRIDIUM DIFFICILE COLITIS [None]
  - FOOD ALLERGY [None]
